FAERS Safety Report 8400825-1 (Version None)
Quarter: 2012Q2

REPORT INFORMATION
  Report Type: 
  Country: None (occurrence: None)
  Receive Date: 20120531
  Receipt Date: 20120524
  Transmission Date: 20120825
  Serious: Yes (Other)
  Sender: FDA-Public Use
  Company Number: VE-ROCHE-1072346

PATIENT
  Sex: Female
  Weight: 61 kg

DRUGS (7)
  1. METHOTREXATE [Concomitant]
     Indication: RHEUMATOID ARTHRITIS
  2. DICLOFENAC [Concomitant]
     Indication: ANALGESIC THERAPY
     Dosage: AS REQUIRED
  3. PREDNISONE TAB [Concomitant]
     Indication: RHEUMATOID ARTHRITIS
  4. ACETAMINOPHEN [Concomitant]
     Indication: ANALGESIC THERAPY
     Dosage: AS REQUIRED
  5. PEGINTERFERON ALFA-2A [Suspect]
     Indication: HEPATITIS C
     Route: 058
     Dates: start: 20120321
  6. RIBAVIRIN [Suspect]
     Indication: HEPATITIS C
     Route: 048
     Dates: start: 20120321
  7. CHLOROQUINE PHOSPHATE [Concomitant]
     Indication: RHEUMATOID ARTHRITIS

REACTIONS (9)
  - PLATELET COUNT DECREASED [None]
  - OROPHARYNGEAL PAIN [None]
  - HEADACHE [None]
  - DRY MOUTH [None]
  - DYSPNOEA [None]
  - TACHYCARDIA [None]
  - INSOMNIA [None]
  - FATIGUE [None]
  - DECREASED APPETITE [None]
